FAERS Safety Report 13738976 (Version 1)
Quarter: 2017Q3

REPORT INFORMATION
  Report Type: Spontaneous
  Country: US (occurrence: US)
  Receive Date: 20170710
  Receipt Date: 20170710
  Transmission Date: 20171127
  Serious: Yes (Other)
  Sender: FDA-Public Use
  Company Number: US-SAOL THERAPEUTICS-2017SAO00756

PATIENT
  Age: 47 Year
  Sex: Female

DRUGS (6)
  1. BACLOFEN. [Suspect]
     Active Substance: BACLOFEN
     Dosage: 665.6 ?G, \DAY
     Route: 037
     Dates: start: 20170417
  2. FENTANYL. [Suspect]
     Active Substance: FENTANYL
     Dosage: 488.3 ?G, \DAY
     Route: 037
     Dates: start: 20170417
  3. BACLOFEN. [Suspect]
     Active Substance: BACLOFEN
     Indication: MULTIPLE SCLEROSIS
     Dosage: 650 ?G, \DAY
     Route: 037
     Dates: start: 20170417
  4. HYDROMORPHONE [Suspect]
     Active Substance: HYDROMORPHONE
     Dosage: 0.22788 MG, \DAY
     Route: 037
     Dates: start: 20170417
  5. HYDROMORPHONE [Suspect]
     Active Substance: HYDROMORPHONE
     Dosage: 0.232 MG, \DAY
     Route: 037
     Dates: start: 20170417
  6. FENTANYL. [Suspect]
     Active Substance: FENTANYL
     Dosage: 499.2 ?G, \DAY
     Route: 037
     Dates: start: 20170417

REACTIONS (2)
  - Device failure [Recovered/Resolved]
  - Drug withdrawal syndrome [Recovered/Resolved]

NARRATIVE: CASE EVENT DATE: 201704
